FAERS Safety Report 19614138 (Version 2)
Quarter: 2021Q3

REPORT INFORMATION
  Report Type: Spontaneous
  Country: PK (occurrence: PK)
  Receive Date: 20210727
  Receipt Date: 20210812
  Transmission Date: 20211014
  Serious: Yes (Death)
  Sender: FDA-Public Use
  Company Number: PK-NOVOPROD-830768

PATIENT
  Age: 65 Year
  Sex: Male
  Weight: 50 kg

DRUGS (1)
  1. MIXTARD 30 [Suspect]
     Active Substance: INSULIN HUMAN
     Indication: TYPE 2 DIABETES MELLITUS
     Dosage: 33 IU, QD
     Route: 058
     Dates: start: 20190516, end: 20210302

REACTIONS (1)
  - Hyperglycaemia [Fatal]
